FAERS Safety Report 7794105-5 (Version None)
Quarter: 2011Q4

REPORT INFORMATION
  Report Type: 
  Country: None (occurrence: None)
  Receive Date: 20111004
  Receipt Date: 20110923
  Transmission Date: 20120403
  Serious: Yes (Other)
  Sender: FDA-Public Use
  Company Number: US-JNJFOC-20110911656

PATIENT
  Sex: Male

DRUGS (4)
  1. DECADRON [Concomitant]
     Indication: PRODUCT USED FOR UNKNOWN INDICATION
     Route: 065
  2. PERCOCET [Concomitant]
     Indication: METASTATIC PAIN
     Route: 065
  3. ZYTIGA [Suspect]
     Indication: PRODUCT USED FOR UNKNOWN INDICATION
     Route: 048
     Dates: start: 20110901, end: 20110901
  4. OXYCONTIN [Concomitant]
     Indication: METASTATIC PAIN
     Route: 065

REACTIONS (5)
  - GASTROINTESTINAL DISORDER [None]
  - OEDEMA PERIPHERAL [None]
  - DIARRHOEA [None]
  - INTESTINAL OBSTRUCTION [None]
  - JOINT SWELLING [None]
